FAERS Safety Report 8510477-8 (Version None)
Quarter: 2012Q3

REPORT INFORMATION
  Report Type: 
  Country: None (occurrence: None)
  Receive Date: 20120715
  Receipt Date: 20120704
  Transmission Date: 20120928
  Serious: Yes (Hospitalization, Other)
  Sender: FDA-Public Use
  Company Number: PHHY2012FR058460

PATIENT
  Sex: Female

DRUGS (18)
  1. LYRICA [Concomitant]
     Dosage: 75 MG, BID
     Dates: start: 20120402
  2. LANSOPRAZOLE [Concomitant]
     Dates: start: 20120417
  3. MAG 2 [Concomitant]
     Dates: start: 20120523
  4. PRIMPERAN TAB [Concomitant]
     Indication: VOMITING
     Dates: start: 20120427
  5. TRAMADOL HCL [Concomitant]
     Dates: start: 20120401, end: 20120410
  6. ATARAX [Concomitant]
     Dates: start: 20120401, end: 20120416
  7. ESOMEPRAZOLE [Concomitant]
     Dates: start: 20120325, end: 20120417
  8. IMOVANE [Concomitant]
     Dates: start: 20120302
  9. VASOBRAL [Concomitant]
     Dates: start: 20120416
  10. ACETAMINOPHEN [Concomitant]
  11. ASPEGIC 1000 [Concomitant]
     Dates: start: 20120324
  12. TEMAZEPAM [Concomitant]
     Dates: start: 20120410, end: 20120416
  13. ATENOLOL [Concomitant]
  14. AMOXICILLIN AND CLAVULANATE POTASSIUM [Suspect]
     Indication: ANTIBIOTIC THERAPY
     Dosage: 1 G, TID
     Route: 048
     Dates: start: 20120328, end: 20120413
  15. AMOXICILLIN [Suspect]
     Indication: ANTIBIOTIC THERAPY
     Dosage: 1 G, TID
     Dates: start: 20120323, end: 20120327
  16. RAMIPRIL [Concomitant]
     Dosage: 2.5 G, BID
     Dates: start: 20120410
  17. PAROXETINE HCL [Concomitant]
     Dosage: 1 DF, UNK
     Dates: start: 20120411
  18. CORDARONE [Concomitant]
     Dosage: 3 DF, UNK
     Dates: start: 20120413, end: 20120415

REACTIONS (7)
  - PYREXIA [None]
  - MIXED LIVER INJURY [None]
  - URINARY TRACT INFECTION [None]
  - SYSTEMIC INFLAMMATORY RESPONSE SYNDROME [None]
  - HAEMANGIOMA [None]
  - HEPATOMEGALY [None]
  - HEPATIC STEATOSIS [None]
